FAERS Safety Report 9997906 (Version 1)
Quarter: 2014Q1

REPORT INFORMATION
  Report Type: Spontaneous
  Country: US (occurrence: None)
  Receive Date: 20140224
  Receipt Date: 20140224
  Transmission Date: 20141002
  Serious: Yes (Hospitalization)
  Sender: FDA-Public Use
  Company Number: PHEH2013US000772

PATIENT
  Sex: Female

DRUGS (2)
  1. TOBI [Suspect]
     Indication: PNEUMONIA PSEUDOMONAL
     Route: 055
     Dates: start: 201205
  2. TOBI [Suspect]
     Route: 055
     Dates: start: 201205

REACTIONS (1)
  - Diarrhoea [None]
